FAERS Safety Report 10899420 (Version 1)
Quarter: 2015Q1

REPORT INFORMATION
  Report Type: Spontaneous
  Country: US (occurrence: US)
  Receive Date: 20150309
  Receipt Date: 20150309
  Transmission Date: 20150721
  Serious: Yes (Other)
  Sender: FDA-Public Use
  Company Number: PHHY2011US110336

PATIENT
  Age: 35 Year
  Sex: Female

DRUGS (4)
  1. HYDROCORTISONE. [Suspect]
     Active Substance: HYDROCORTISONE
     Indication: PRODUCT USED FOR UNKNOWN INDICATION
     Dosage: 2 DF, (20MG IN THE MORNING AND 10MG IN THE EVENING)
     Route: 048
  2. BROMOCRIPTINE MESILATE [Suspect]
     Active Substance: BROMOCRIPTINE
     Indication: PRODUCT USED FOR UNKNOWN INDICATION
     Dosage: 2.5 MG, QD
     Route: 048
  3. DEXAMETHASONE. [Suspect]
     Active Substance: DEXAMETHASONE
     Indication: PRODUCT USED FOR UNKNOWN INDICATION
     Dosage: 0.5 MG, BID
     Route: 048
  4. LEVOTHYROXINE [Suspect]
     Active Substance: LEVOTHYROXINE
     Indication: PRODUCT USED FOR UNKNOWN INDICATION
     Dosage: 125 UG, QD
     Route: 065

REACTIONS (6)
  - Vomiting [Unknown]
  - Nausea [Unknown]
  - Maternal exposure during pregnancy [Unknown]
  - Diplopia [Unknown]
  - Headache [Unknown]
  - Pituitary haemorrhage [Unknown]
